FAERS Safety Report 24714370 (Version 2)
Quarter: 2024Q4

REPORT INFORMATION
  Report Type: Spontaneous
  Country: JP (occurrence: JP)
  Receive Date: 20241209
  Receipt Date: 20241227
  Transmission Date: 20250115
  Serious: Yes (Hospitalization, Other)
  Sender: NOVARTIS
  Company Number: JP-002147023-NVSJ2024JP012927

PATIENT
  Sex: Male

DRUGS (4)
  1. LUTATHERA [Suspect]
     Active Substance: LUTETIUM OXODOTREOTIDE LU-177
     Indication: Neuroendocrine tumour
     Dosage: 7.4 GBQ
     Route: 041
     Dates: start: 20240229
  2. LUTATHERA [Suspect]
     Active Substance: LUTETIUM OXODOTREOTIDE LU-177
     Dosage: 7.4 GBQ
     Route: 041
     Dates: start: 20240509, end: 20240509
  3. ARGININE\LYSINE [Concomitant]
     Active Substance: ARGININE\LYSINE
     Indication: Product used for unknown indication
     Dosage: 1000 ML
     Route: 041
     Dates: start: 20240229, end: 20240229
  4. ARGININE\LYSINE [Concomitant]
     Active Substance: ARGININE\LYSINE
     Dosage: 1000 ML
     Route: 041
     Dates: start: 20240509, end: 20240509

REACTIONS (4)
  - Cholangitis [Recovered/Resolved]
  - Malaise [Unknown]
  - Pyrexia [Unknown]
  - Inappropriate schedule of product administration [Unknown]

NARRATIVE: CASE EVENT DATE: 20240509
